FAERS Safety Report 13344769 (Version 1)
Quarter: 2017Q1

REPORT INFORMATION
  Report Type: Spontaneous
  Country: US (occurrence: US)
  Receive Date: 20170317
  Receipt Date: 20170317
  Transmission Date: 20170428
  Serious: Yes (Other)
  Sender: FDA-Public Use
  Company Number: US-ELI_LILLY_AND_COMPANY-US201703004206

PATIENT
  Age: 47 Year
  Sex: Female

DRUGS (4)
  1. LARTRUVO [Suspect]
     Active Substance: OLARATUMAB
     Dosage: 1450 MG, UNK
     Dates: start: 20170224
  2. DOXORUBICIN [Suspect]
     Active Substance: DOXORUBICIN
     Indication: ENDOMETRIAL SARCOMA
     Dosage: UNK
     Dates: start: 20170210
  3. NEULASTA [Concomitant]
     Active Substance: PEGFILGRASTIM
     Indication: PROPHYLAXIS
     Dosage: UNK
     Dates: start: 20170211
  4. LARTRUVO [Suspect]
     Active Substance: OLARATUMAB
     Indication: ENDOMETRIAL SARCOMA
     Dosage: 1800 MG, CYCLICAL
     Dates: start: 20170210

REACTIONS (2)
  - Neutropenia [Recovered/Resolved]
  - Wrong technique in product usage process [Unknown]

NARRATIVE: CASE EVENT DATE: 20170217
